FAERS Safety Report 17542100 (Version 1)
Quarter: 2020Q1

REPORT INFORMATION
  Report Type: Spontaneous
  Country: AT (occurrence: AT)
  Receive Date: 20200313
  Receipt Date: 20200313
  Transmission Date: 20200409
  Serious: Yes (Other)
  Sender: FDA-Public Use
  Company Number: AT-B.I. PHARMACEUTICALS,INC./RIDGEFIELD-2020-BI-013601

PATIENT
  Age: 73 Year
  Sex: Male

DRUGS (2)
  1. METHOTREXAT [METHOTREXATE] [Concomitant]
     Active Substance: METHOTREXATE
     Indication: PSORIATIC ARTHROPATHY
     Route: 065
  2. OFEV [Suspect]
     Active Substance: NINTEDANIB
     Indication: IDIOPATHIC PULMONARY FIBROSIS
     Route: 065
     Dates: start: 201711

REACTIONS (5)
  - Combined pulmonary fibrosis and emphysema [Unknown]
  - Diarrhoea [Unknown]
  - Forced vital capacity decreased [Unknown]
  - Lung diffusion disorder [Unknown]
  - Oxygen therapy [Unknown]
